FAERS Safety Report 20821474 (Version 1)
Quarter: 2022Q2

REPORT INFORMATION
  Report Type: Spontaneous
  Country: PL (occurrence: PL)
  Receive Date: 20220512
  Receipt Date: 20220512
  Transmission Date: 20220721
  Serious: Yes (Death, Hospitalization)
  Sender: FDA-Public Use
  Company Number: PL-POLPHARMA-031314

PATIENT
  Age: 31 Year
  Sex: Female

DRUGS (7)
  1. ACYCLOVIR [Suspect]
     Active Substance: ACYCLOVIR
     Indication: Product used for unknown indication
     Dosage: UNK
  2. FENTANYL [Concomitant]
     Active Substance: FENTANYL
     Indication: Sedative therapy
     Dosage: UNK
  3. FENTANYL [Concomitant]
     Active Substance: FENTANYL
     Dosage: UNK
  4. PROPOFOL [Concomitant]
     Active Substance: PROPOFOL
     Indication: Sedative therapy
     Dosage: UNK
  5. MINIRIN [Concomitant]
     Active Substance: DESMOPRESSIN ACETATE
     Indication: Electrolyte imbalance
     Dosage: UNK
  6. Levonor [Concomitant]
     Indication: Cardiovascular disorder
     Dosage: UNK
  7. METOPROLOL [Concomitant]
     Active Substance: METOPROLOL
     Indication: Tachycardia
     Dosage: UNK

REACTIONS (1)
  - Drug ineffective [Fatal]
